FAERS Safety Report 16584719 (Version 1)
Quarter: 2019Q3

REPORT INFORMATION
  Report Type: Spontaneous
  Country: US (occurrence: US)
  Receive Date: 20190716
  Receipt Date: 20190716
  Transmission Date: 20191004
  Serious: Yes (Other)
  Sender: FDA-Public Use
  Company Number: None

PATIENT
  Age: 36 Year
  Sex: Female
  Weight: 95.85 kg

DRUGS (1)
  1. ABILIFY MAINTENA [Suspect]
     Active Substance: ARIPIPRAZOLE
     Indication: SCHIZOAFFECTIVE DISORDER BIPOLAR TYPE
     Dosage: ?          QUANTITY:1 INJECTION(S);OTHER FREQUENCY:Q 3 WKS;?
     Route: 030
     Dates: start: 20180206

REACTIONS (8)
  - Dyspnoea [None]
  - Wheezing [None]
  - Middle insomnia [None]
  - Pruritus [None]
  - Injection site pruritus [None]
  - Injection site urticaria [None]
  - Hypersensitivity [None]
  - Urticaria [None]

NARRATIVE: CASE EVENT DATE: 20190715
